FAERS Safety Report 17208320 (Version 1)
Quarter: 2019Q4

REPORT INFORMATION
  Report Type: Spontaneous
  Country: SE (occurrence: SE)
  Receive Date: 20191227
  Receipt Date: 20191227
  Transmission Date: 20200122
  Serious: Yes (Hospitalization)
  Sender: FDA-Public Use
  Company Number: SE-009507513-1912SWE009755

PATIENT
  Sex: Male

DRUGS (3)
  1. PROPAVAN [Suspect]
     Active Substance: PROPIOMAZINE
     Dosage: 1, (1 TOTAL), 15 PIECES
     Route: 048
     Dates: start: 20190226, end: 20190226
  2. MIRTAZAPINE. [Suspect]
     Active Substance: MIRTAZAPINE
     Dosage: 1, (1 TOTAL), 15-20 PIECES
     Route: 048
     Dates: start: 20190226, end: 20190226
  3. NOZINAN [Suspect]
     Active Substance: LEVOMEPROMAZINE
     Dosage: 625 MILLIGRAM (1 TOTAL), 25 PIECES
     Route: 048
     Dates: start: 20190226, end: 20190226

REACTIONS (2)
  - Intentional self-injury [Unknown]
  - Intentional overdose [Unknown]

NARRATIVE: CASE EVENT DATE: 20190226
